FAERS Safety Report 6030274-5 (Version None)
Quarter: 2009Q1

REPORT INFORMATION
  Report Type: 
  Country: None (occurrence: None)
  Receive Date: 20090107
  Receipt Date: 20081229
  Transmission Date: 20090719
  Serious: Yes (Life-Threatening)
  Sender: FDA-Public Use
  Company Number: FR-SANOFI-SYNTHELABO-A02200803693

PATIENT
  Age: 3 Month
  Sex: Female
  Weight: 4 kg

DRUGS (8)
  1. MYTELASE [Suspect]
     Indication: MYASTHENIC SYNDROME
     Dosage: 2 MG
     Route: 048
     Dates: start: 20081017, end: 20081117
  2. MYTELASE [Suspect]
     Dosage: 2.4 MG
     Route: 048
     Dates: start: 20081118, end: 20081204
  3. MYTELASE [Suspect]
     Dosage: 2.6 MG
     Route: 048
     Dates: start: 20081205, end: 20081201
  4. MYTELASE [Suspect]
     Dosage: 2 MG
     Route: 048
     Dates: start: 20081222
  5. PERFALGAN [Concomitant]
     Indication: DRUG USE FOR UNKNOWN INDICATION
     Dosage: UNK
     Route: 042
     Dates: start: 20080101
  6. NEXIUM [Concomitant]
     Indication: DRUG USE FOR UNKNOWN INDICATION
     Dosage: UNK
     Route: 065
     Dates: start: 20080101
  7. PHOCYTAN [Concomitant]
     Indication: DRUG USE FOR UNKNOWN INDICATION
     Dosage: UNK
     Route: 042
     Dates: start: 20080101
  8. UVESTEROL [Concomitant]
     Indication: DRUG USE FOR UNKNOWN INDICATION
     Dosage: UNK
     Route: 048
     Dates: start: 20080101

REACTIONS (6)
  - CHOLINERGIC SYNDROME [None]
  - CONVULSION [None]
  - DIARRHOEA [None]
  - MIOSIS [None]
  - OVERDOSE [None]
  - VOMITING [None]
